FAERS Safety Report 6409656-5 (Version None)
Quarter: 2009Q4

REPORT INFORMATION
  Report Type: 
  Country: None (occurrence: None)
  Receive Date: 20091020
  Receipt Date: 20091020
  Transmission Date: 20100525
  Serious: Yes (Other)
  Sender: FDA-Public Use
  Company Number: None

PATIENT
  Sex: Female
  Weight: 61.2356 kg

DRUGS (2)
  1. BONIVA [Suspect]
     Indication: OSTEOARTHRITIS
     Dosage: 150 MG
     Dates: start: 20090813
  2. BONIVA [Suspect]
     Indication: OSTEOPOROSIS
     Dosage: 150 MG
     Dates: start: 20090813

REACTIONS (2)
  - DYSKINESIA [None]
  - PAIN IN JAW [None]
